FAERS Safety Report 7096410-7 (Version None)
Quarter: 2010Q4

REPORT INFORMATION
  Report Type: 
  Country: None (occurrence: None)
  Receive Date: 20101109
  Receipt Date: 20101109
  Transmission Date: 20110411
  Serious: Yes (Death)
  Sender: FDA-Public Use
  Company Number: None

PATIENT
  Sex: Male
  Weight: 0.59 kg

DRUGS (1)
  1. INFASURF 3ML CONTAINER ONLY [Suspect]
     Indication: COMPLEX REGIONAL PAIN SYNDROME
     Dosage: 1.9 ML DOSE X 2 PER LTT
     Dates: start: 20101022

REACTIONS (2)
  - HEART RATE ABNORMAL [None]
  - OXYGEN SATURATION DECREASED [None]
